FAERS Safety Report 16041123 (Version 1)
Quarter: 2019Q2

REPORT INFORMATION
  Report Type: Spontaneous
  Country: US (occurrence: US)
  Receive Date: 20190305
  Receipt Date: 20190305
  Transmission Date: 20190711
  Serious: Yes (Death)
  Sender: FDA-Public Use
  Company Number: None

PATIENT
  Age: 82 Year
  Sex: Male

DRUGS (23)
  1. AMITRIPTYLIN TAB 25MG [Concomitant]
  2. CENTRUM TAB SILVER [Concomitant]
  3. CLONIDINE TAB 0.2MG [Concomitant]
  4. COQ10 CAP 150MG [Concomitant]
  5. BENAZEPRIL TAB 10MG [Concomitant]
  6. LASIX TAB 40MG [Concomitant]
  7. LOVENOX INJ 80/0.8ML [Concomitant]
  8. LUPRON DEPOT [Suspect]
     Active Substance: LEUPROLIDE ACETATE
     Indication: PROSTATE CANCER
     Dosage: 22.5 MG EVERY 3 MONTHS INTRAMUSCULAR?
     Route: 030
     Dates: start: 20141126
  9. FLOMAX CAP 0.4MG [Concomitant]
  10. FOLIC ACID TAB 1MG [Concomitant]
  11. ASPIRIN CHW 81MG [Concomitant]
  12. GLUCOS/CHOND TAB 500-400 [Concomitant]
  13. METOPROL TAR TAB 100MG [Concomitant]
  14. VITAMIN D3 TAB 1000UNIT [Concomitant]
  15. VITAMIN E CAP 400UNIT [Concomitant]
  16. B1 NATURAL TAB 250MG [Concomitant]
  17. ISOSORB MONO TAB 20MG [Concomitant]
  18. LOTREL [Concomitant]
     Active Substance: AMLODIPINE BESYLATE\BENAZEPRIL HYDROCHLORIDE
  19. VITAMIN B-1 TAB 100MG [Concomitant]
  20. AMLODIPINE TAB 5MG [Concomitant]
  21. ABIRATERONE ACETATE. [Suspect]
     Active Substance: ABIRATERONE ACETATE
     Indication: PROSTATE CANCER
     Route: 048
     Dates: start: 20190116
  22. CASODEX TAB 50MG [Concomitant]
  23. FIBER-CAPS TAB 625MG [Concomitant]

REACTIONS (1)
  - Death [None]

NARRATIVE: CASE EVENT DATE: 20190224
